FAERS Safety Report 8282405-4 (Version None)
Quarter: 2012Q2

REPORT INFORMATION
  Report Type: 
  Country: None (occurrence: None)
  Receive Date: 20120410
  Receipt Date: 20120327
  Transmission Date: 20120825
  Serious: Yes (Hospitalization)
  Sender: FDA-Public Use
  Company Number: 201203019

PATIENT
  Age: 48 Year
  Sex: Male
  Weight: 158.759 kg

DRUGS (9)
  1. ACETAMINOPHEN [Concomitant]
  2. HYDROCHLOROTHIAZIDE [Suspect]
     Indication: HYPERTENSION
     Dates: end: 20120223
  3. CARVEDILOL [Concomitant]
  4. SIMVASTATIN [Concomitant]
  5. SIMVASTATIN [Concomitant]
  6. DILTIAZEM [Concomitant]
  7. TESTIM [Suspect]
     Dosage: 1 IN 1 D, TRANSDERMAL
     Route: 062
     Dates: start: 20120114
  8. MELOXICAM [Concomitant]
  9. DIGOXIN [Concomitant]

REACTIONS (4)
  - FATIGUE [None]
  - HYPERSOMNIA [None]
  - HEPATIC NEOPLASM MALIGNANT [None]
  - IMPAIRED WORK ABILITY [None]
